FAERS Safety Report 15665977 (Version 5)
Quarter: 2019Q2

REPORT INFORMATION
  Report Type: Spontaneous
  Country: US (occurrence: US)
  Receive Date: 20181128
  Receipt Date: 20190404
  Transmission Date: 20190711
  Serious: Yes (Hospitalization, Other)
  Sender: FDA-Public Use
  Company Number: US-LEXICON PHARMACEUTICALS, INC-18-1606-01393

PATIENT
  Sex: Male

DRUGS (20)
  1. LOPERAMIDE [Concomitant]
     Active Substance: LOPERAMIDE
  2. QUESTRAN [Concomitant]
     Active Substance: CHOLESTYRAMINE
  3. CREON [Concomitant]
     Active Substance: PANCRELIPASE AMYLASE\PANCRELIPASE LIPASE\PANCRELIPASE PROTEASE
  4. TELOTRISTAT ETHYL [Suspect]
     Active Substance: TELOTRISTAT ETHYL
     Indication: CARCINOID TUMOUR
     Route: 048
     Dates: start: 20170422
  5. K-PHOS [Concomitant]
     Active Substance: POTASSIUM PHOSPHATE, MONOBASIC
  6. OMEGA3 [Concomitant]
  7. BELLADONNA-OPIUM [Concomitant]
  8. MEGACE ORAL SUS [Concomitant]
  9. ZOFRAN [Concomitant]
     Active Substance: ONDANSETRON HYDROCHLORIDE
  10. TELOTRISTAT ETHYL [Suspect]
     Active Substance: TELOTRISTAT ETHYL
     Route: 048
  11. TYLENOL [Concomitant]
     Active Substance: ACETAMINOPHEN
  12. DIPHENOXYLATE-ATROPINE [Concomitant]
     Active Substance: ATROPINE\DIPHENOXYLATE
  13. SIMETHICONE (DIMETHICONE) [Concomitant]
     Active Substance: DIMETHICONE
  14. MULTIVITAMIN [Concomitant]
     Active Substance: VITAMINS
  15. AFINITOR [Concomitant]
     Active Substance: EVEROLIMUS
     Route: 048
     Dates: start: 201710
  16. FIBER [Concomitant]
     Active Substance: PSYLLIUM HUSK
  17. ROXICODONE [Concomitant]
     Active Substance: OXYCODONE HYDROCHLORIDE
  18. SANDOSTATIN [Concomitant]
     Active Substance: OCTREOTIDE ACETATE
  19. MELATONIN [Concomitant]
     Active Substance: MELATONIN
  20. METAMUCIL [Concomitant]
     Active Substance: PLANTAGO SEED

REACTIONS (4)
  - Abdominal hernia repair [Not Recovered/Not Resolved]
  - Diabetes mellitus [Unknown]
  - Abdominal hernia infection [Unknown]
  - Infusion [Not Recovered/Not Resolved]
